FAERS Safety Report 9153780 (Version 1)
Quarter: 2013Q1

REPORT INFORMATION
  Report Type: Spontaneous
  Country: US (occurrence: None)
  Receive Date: 20130206
  Receipt Date: 20130206
  Transmission Date: 20140127
  Serious: Yes (Hospitalization, Other)
  Sender: FDA-Public Use
  Company Number: JPI-P-029461

PATIENT
  Age: 78 Year
  Sex: Female
  Weight: 57.61 kg

DRUGS (8)
  1. XYREM (500 MILLIGRAM/MILLILITERS, SOLUTION) (SODIUM OXYBATE) [Suspect]
     Indication: CATAPLEXY
     Route: 048
     Dates: start: 2002
  2. TRAMADOL (500 MILLIGRAM/MILLILITERS, SOLUTION) [Concomitant]
  3. ALENDRONATE SODIUM [Concomitant]
  4. LISINOPRIL [Concomitant]
  5. NEBIVOLOL [Concomitant]
  6. RALOXIFENE HYDROCHLORIDE [Concomitant]
  7. ATORVASTATIN CALCIUM [Concomitant]
  8. MODAFINIL [Concomitant]

REACTIONS (3)
  - Nerve compression [None]
  - Carpal tunnel decompression [None]
  - Hip arthroplasty [None]
